FAERS Safety Report 6249109-0 (Version None)
Quarter: 2009Q2

REPORT INFORMATION
  Report Type: 
  Country: None (occurrence: None)
  Receive Date: 20090624
  Receipt Date: 20090624
  Transmission Date: 20091009
  Serious: No
  Sender: FDA-Public Use
  Company Number: None

PATIENT
  Sex: Male
  Weight: 71.2147 kg

DRUGS (2)
  1. LUPRON [Suspect]
     Indication: NEOPLASM PROSTATE
     Dosage: DR INJECTS EVERY 3 MONTHS IM
     Route: 030
     Dates: start: 20090420
  2. LUPRON [Suspect]
     Indication: PROSTATIC SPECIFIC ANTIGEN
     Dosage: DR INJECTS EVERY 3 MONTHS IM
     Route: 030
     Dates: start: 20090619

REACTIONS (5)
  - ARTHRALGIA [None]
  - GAIT DISTURBANCE [None]
  - MUSCULOSKELETAL PAIN [None]
  - PAIN IN EXTREMITY [None]
  - PHYSICAL DISABILITY [None]
